FAERS Safety Report 16078841 (Version 3)
Quarter: 2019Q3

REPORT INFORMATION
  Report Type: Spontaneous
  Country: CA (occurrence: CA)
  Receive Date: 20190315
  Receipt Date: 20190812
  Transmission Date: 20191004
  Serious: Yes (Other)
  Sender: FDA-Public Use
  Company Number: CA-PFIZER INC-2018501634

PATIENT
  Age: 35 Year
  Sex: Male

DRUGS (2)
  1. TACROLIMUS. [Concomitant]
     Active Substance: TACROLIMUS
     Dosage: 2 MG, 2X/DAY
  2. XELJANZ [Suspect]
     Active Substance: TOFACITINIB CITRATE
     Indication: COLITIS ULCERATIVE
     Dosage: 10 MG, 2X/DAY (FOR 8 WEEKS INDUCTION)
     Route: 048
     Dates: start: 20181211, end: 2019

REACTIONS (9)
  - Abdominal pain [Recovering/Resolving]
  - Rectal haemorrhage [Unknown]
  - Arthritis [Recovering/Resolving]
  - Arthralgia [Unknown]
  - Pain in extremity [Unknown]
  - Condition aggravated [Not Recovered/Not Resolved]
  - Rectal tenesmus [Unknown]
  - Therapeutic product effect incomplete [Recovering/Resolving]
  - Off label use [Unknown]
